FAERS Safety Report 25054473 (Version 2)
Quarter: 2025Q1

REPORT INFORMATION
  Report Type: Spontaneous
  Country: US (occurrence: US)
  Receive Date: 20250307
  Receipt Date: 20250322
  Transmission Date: 20250409
  Serious: No
  Sender: SANOFI AVENTIS
  Company Number: US-SA-2025SA066933

PATIENT
  Age: 84 Year
  Sex: Male

DRUGS (1)
  1. DUPIXENT [Suspect]
     Active Substance: DUPILUMAB
     Dosage: 300 MG, QOW
     Route: 058

REACTIONS (7)
  - Secretion discharge [Unknown]
  - Lacrimation increased [Unknown]
  - Dyspnoea [Unknown]
  - Cough [Unknown]
  - Rash pruritic [Unknown]
  - Vision blurred [Unknown]
  - Arthralgia [Not Recovered/Not Resolved]
